FAERS Safety Report 8119103-3 (Version None)
Quarter: 2012Q1

REPORT INFORMATION
  Report Type: 
  Country: None (occurrence: None)
  Receive Date: 20120207
  Receipt Date: 20120203
  Transmission Date: 20120608
  Serious: Yes (Death, Other)
  Sender: FDA-Public Use
  Company Number: PHHY2012JP009268

PATIENT
  Age: 64 Year
  Sex: Male

DRUGS (5)
  1. ACETYLSALICYLIC ACID SRT [Suspect]
     Indication: ACUTE CORONARY SYNDROME
     Dosage: 100 MG, QD
  2. TICLOPIDINE HCL [Suspect]
     Indication: ACUTE CORONARY SYNDROME
     Dosage: 200 MG, QD
  3. OMEPRAZOLE [Concomitant]
  4. AMPICILLIN AND SULBACTAM [Concomitant]
     Indication: PYREXIA
  5. HEPARIN [Suspect]
     Dosage: 10000 DF, UNK

REACTIONS (7)
  - PULMONARY ALVEOLAR HAEMORRHAGE [None]
  - PULMONARY HAEMORRHAGE [None]
  - HAEMOPTYSIS [None]
  - ACUTE RESPIRATORY FAILURE [None]
  - HYPOXIA [None]
  - RESPIRATORY DISTRESS [None]
  - PLATELET COUNT DECREASED [None]
